FAERS Safety Report 8530948-8 (Version None)
Quarter: 2012Q3

REPORT INFORMATION
  Report Type: 
  Country: None (occurrence: None)
  Receive Date: 20120723
  Receipt Date: 20120719
  Transmission Date: 20120928
  Serious: Yes (Death)
  Sender: FDA-Public Use
  Company Number: US-ROCHE-1090560

PATIENT
  Age: 83 Year
  Sex: Female

DRUGS (1)
  1. ACTIVASE [Suspect]
     Indication: CEREBROVASCULAR ACCIDENT

REACTIONS (2)
  - HAEMORRHAGE INTRACRANIAL [None]
  - DEATH [None]
